FAERS Safety Report 9826092 (Version 2)
Quarter: 2014Q1

REPORT INFORMATION
  Report Type: Spontaneous
  Country: JP (occurrence: JP)
  Receive Date: 20140117
  Receipt Date: 20140117
  Transmission Date: 20141002
  Serious: Yes (Death, Hospitalization)
  Sender: FDA-Public Use
  Company Number: JP-SA-2013SA136255

PATIENT
  Age: 66 Year
  Sex: Male

DRUGS (6)
  1. CISPLATIN [Suspect]
     Indication: GASTRIC CANCER RECURRENT
     Dosage: SECOND LINE CHEMOTHERAPY
     Route: 065
  2. DOCETAXEL [Suspect]
     Indication: GASTRIC CANCER RECURRENT
     Dosage: FIRST TWO COURSES OF THIRD LINE CHEMOTHERAPY; ADMINISTERED ON DAYS 1 AND 8, EVERY 21 DAYS
     Route: 065
  3. DOCETAXEL [Suspect]
     Indication: GASTRIC CANCER RECURRENT
     Dosage: THIRD LINE CHEMOTHERAPY; ADMINISTERED ON DAYS 1 AND 8, EVERY 21 DAYS
     Route: 065
  4. PACLITAXEL [Suspect]
     Indication: GASTRIC CANCER RECURRENT
     Dosage: SECOND LINE CHEMOTHERAPY
     Route: 065
  5. S-1 [Suspect]
     Indication: GASTRIC CANCER RECURRENT
     Dosage: FIRST TWO COURSES OF THIRD LINE CHEMOTHERAPY; ADMINISTERED ON DAYS 1 TO 14 EVERY 21 DAYS
     Route: 065
  6. S-1 [Suspect]
     Indication: GASTRIC CANCER RECURRENT
     Dosage: THIRD LINE CHEMOTHERAPY; ADMINISTERED ON DAYS 1 TO 14 EVERY 21 DAYS
     Route: 065

REACTIONS (13)
  - Gastrointestinal perforation [Recovered/Resolved]
  - Abdominal pain [Recovered/Resolved]
  - Ascites [Recovered/Resolved]
  - Body temperature increased [Recovered/Resolved]
  - Abdominal tenderness [Recovered/Resolved]
  - Epigastric discomfort [Recovered/Resolved]
  - Haematocrit decreased [Recovered/Resolved]
  - Blood urea increased [Recovered/Resolved]
  - Blood lactate dehydrogenase increased [Recovered/Resolved]
  - C-reactive protein increased [Recovered/Resolved]
  - Malignant ascites [Fatal]
  - Hypersensitivity [Unknown]
  - Rash [Unknown]
